FAERS Safety Report 10013669 (Version 1)
Quarter: 2014Q1

REPORT INFORMATION
  Report Type: Spontaneous
  Country: US (occurrence: US)
  Receive Date: 20140315
  Receipt Date: 20140315
  Transmission Date: 20141002
  Serious: No
  Sender: FDA-Public Use
  Company Number: US-B.I. PHARMACEUTICALS,INC./RIDGEFIELD-2014-BI-09902BP

PATIENT
  Age: 71 Year
  Sex: Female

DRUGS (15)
  1. SPIRIVA [Suspect]
     Indication: CHRONIC OBSTRUCTIVE PULMONARY DISEASE
     Dosage: 18 MCG
     Route: 055
     Dates: start: 20140304
  2. CYTOMEL [Concomitant]
     Route: 048
  3. AVALIDE [Concomitant]
     Route: 048
  4. PREMARIN [Concomitant]
     Route: 048
  5. KLORCON-M [Concomitant]
     Route: 048
  6. ADVAIR [Concomitant]
     Route: 055
  7. PROAIR [Concomitant]
     Route: 055
  8. FLONASE [Concomitant]
     Route: 045
  9. AZOPT EYE DROP [Concomitant]
  10. ALPHAGAN [Concomitant]
  11. LUMIGAN [Concomitant]
  12. VITAMIN E [Concomitant]
     Route: 048
  13. VITAMIN D [Concomitant]
     Route: 048
  14. IPRATROPIUM NEBULIZER [Concomitant]
     Route: 055
  15. PREDNISONE [Concomitant]
     Route: 048

REACTIONS (1)
  - Lacrimation increased [Not Recovered/Not Resolved]
